FAERS Safety Report 23306374 (Version 1)
Quarter: 2023Q4

REPORT INFORMATION
  Report Type: Report from Study
  Country: US (occurrence: US)
  Receive Date: 20231218
  Receipt Date: 20231218
  Transmission Date: 20240109
  Serious: No
  Sender: FDA-Public Use
  Company Number: US-ALXN-A202215846

PATIENT
  Age: 81 Year
  Sex: Male

DRUGS (1)
  1. ULTOMIRIS [Suspect]
     Active Substance: RAVULIZUMAB-CWVZ
     Indication: Myasthenia gravis
     Dosage: UNK
     Route: 065
     Dates: start: 20221031

REACTIONS (8)
  - Mastication disorder [Not Recovered/Not Resolved]
  - Dysphagia [Not Recovered/Not Resolved]
  - Suspected COVID-19 [Unknown]
  - Drug effect less than expected [Unknown]
  - Sinusitis [Unknown]
  - Ear infection fungal [Unknown]
  - Genital infection fungal [Unknown]
  - Asthenia [Not Recovered/Not Resolved]

NARRATIVE: CASE EVENT DATE: 20230201
